FAERS Safety Report 23031536 (Version 2)
Quarter: 2023Q4

REPORT INFORMATION
  Report Type: Report from Study
  Country: DE (occurrence: DE)
  Receive Date: 20231005
  Receipt Date: 20231017
  Transmission Date: 20240110
  Serious: Yes (Hospitalization)
  Sender: FDA-Public Use
  Company Number: DE-CELLTRION INC.-2023DE019008

PATIENT

DRUGS (14)
  1. TRASTUZUMAB [Suspect]
     Active Substance: TRASTUZUMAB
     Indication: HER2 positive breast cancer
     Dosage: 600 MG, Q3WEEKS
     Route: 058
  2. CAPECITABINE [Suspect]
     Active Substance: CAPECITABINE
     Indication: HER2 positive breast cancer
     Dosage: 1600 QD
     Route: 048
  3. TUCATINIB [Suspect]
     Active Substance: TUCATINIB
     Indication: HER2 positive breast cancer
     Dosage: 300 MG, DAILY
     Route: 048
     Dates: start: 20230404
  4. PANTOPRAZOLE [Concomitant]
     Active Substance: PANTOPRAZOLE
     Indication: Prophylaxis
     Dosage: 40 MG, DAILY
     Route: 048
     Dates: start: 20040301
  5. MIRTAZAPINE [Concomitant]
     Active Substance: MIRTAZAPINE
     Indication: Prophylaxis
     Dosage: 15 MG, DAILY
     Route: 048
     Dates: start: 20180701
  6. CALCIUMCARBONAT [Concomitant]
     Indication: Prophylaxis
     Dosage: 1000 MG, DAILY
     Route: 048
     Dates: start: 20230726
  7. DENOSUMAB [Concomitant]
     Active Substance: DENOSUMAB
     Indication: Prophylaxis
     Dosage: 120 MG, MONTHLY
     Route: 058
     Dates: start: 20230726
  8. DEXAMETHASONE SODIUM PHOSPHATE [Concomitant]
     Active Substance: DEXAMETHASONE SODIUM PHOSPHATE
     Indication: Prophylaxis
     Dosage: 4 MG, BID
     Route: 048
     Dates: start: 20230222
  9. ALLOPURINOL [Concomitant]
     Active Substance: ALLOPURINOL
     Indication: Prophylaxis
     Dosage: 300 MG, DAILY
     Route: 048
     Dates: start: 20210201
  10. METOPROLOL [Concomitant]
     Active Substance: METOPROLOL
     Indication: Prophylaxis
     Dosage: 47.5 MG, DAILY
     Route: 048
     Dates: start: 20170101
  11. PREGABALIN [Concomitant]
     Active Substance: PREGABALIN
     Indication: Prophylaxis
     Dosage: 25 MG, QID
     Route: 048
     Dates: start: 20180701
  12. METAMIZOL [Concomitant]
     Active Substance: METAMIZOLE SODIUM
     Indication: Fibromyalgia
     Dosage: 500 MG, BID
     Route: 048
     Dates: start: 20230510
  13. NALOXONE HYDROCHLORIDE\TILIDINE HYDROCHLORIDE [Concomitant]
     Active Substance: NALOXONE HYDROCHLORIDE\TILIDINE HYDROCHLORIDE
     Indication: Prophylaxis
     Dosage: 50 MG, DAILY
     Route: 048
     Dates: start: 20210801
  14. SERTRALINE HYDROCHLORIDE [Concomitant]
     Active Substance: SERTRALINE HYDROCHLORIDE
     Indication: Prophylaxis
     Dosage: 50 MG, BID
     Route: 048
     Dates: start: 20140101

REACTIONS (3)
  - Faeces discoloured [Recovering/Resolving]
  - Abdominal pain upper [Recovering/Resolving]
  - Intentional product use issue [Unknown]

NARRATIVE: CASE EVENT DATE: 20230918
